FAERS Safety Report 8914986 (Version 1)
Quarter: 2012Q4

REPORT INFORMATION
  Report Type: 
  Country: US (occurrence: US)
  Receive Date: 20121119
  Receipt Date: 20121119
  Transmission Date: 20130627
  Serious: Yes (Hospitalization)
  Sender: FDA-Public Use
  Company Number: US-ELI_LILLY_AND_COMPANY-US201211002458

PATIENT
  Sex: Female

DRUGS (4)
  1. HUMULIN 30% REGULAR, 70% NPH [Suspect]
     Indication: TYPE 2 DIABETES MELLITUS
     Dosage: UNK, bid
     Dates: start: 1992
  2. HUMULIN 30% REGULAR, 70% NPH [Suspect]
     Dosage: 52 u, each morning
  3. HUMULIN 30% REGULAR, 70% NPH [Suspect]
     Dosage: 42 u, each evening
  4. METFORMIN [Concomitant]

REACTIONS (7)
  - Cardiac operation [Recovered/Resolved]
  - Arterial repair [Recovered/Resolved]
  - Vascular graft [Recovered/Resolved]
  - Surgery [Recovered/Resolved]
  - Surgery [Recovering/Resolving]
  - Hypersensitivity [Not Recovered/Not Resolved]
  - Gait disturbance [Not Recovered/Not Resolved]
